FAERS Safety Report 11094472 (Version 1)
Quarter: 2015Q2

REPORT INFORMATION
  Report Type: Spontaneous
  Country: US (occurrence: US)
  Receive Date: 20150506
  Receipt Date: 20150506
  Transmission Date: 20150821
  Serious: No
  Sender: FDA-Public Use
  Company Number: US-PFIZER INC-2015152188

PATIENT
  Age: 68 Year
  Sex: Female
  Weight: 57.6 kg

DRUGS (13)
  1. IBRANCE [Suspect]
     Active Substance: PALBOCICLIB
     Indication: BONE CANCER
     Dosage: 125 MG, CYCLIC (ON IT FOR 21 DAYS AND THEN OFF FOR A WEEK)
     Dates: start: 20150427
  2. LEVOTHYROXINE [Concomitant]
     Active Substance: LEVOTHYROXINE
     Indication: THYROID DISORDER
     Dosage: 50 ?G, 1X/DAY
  3. PRILOSEC OTC [Concomitant]
     Active Substance: OMEPRAZOLE MAGNESIUM
     Indication: GASTROOESOPHAGEAL REFLUX DISEASE
     Dosage: 20.6 MG, 1X/DAY
  4. DENOSUMAB [Concomitant]
     Active Substance: DENOSUMAB
     Indication: BONE CANCER
     Dosage: 120 MG, CYCLIC EVERY 6 WEEKS
  5. XGEVA [Concomitant]
     Active Substance: DENOSUMAB
     Indication: BONE CANCER
     Dosage: UNK
  6. PRAVASTATIN [Concomitant]
     Active Substance: PRAVASTATIN\PRAVASTATIN SODIUM
     Indication: BLOOD CHOLESTEROL
     Dosage: 20 MG, 1X/DAY
  7. REGULAR STRENGHT TYLENOL [Concomitant]
     Indication: HEADACHE
     Dosage: 325 MG, TWO AT A TIME AS NEEDED
  8. WARFARIN SODIUM. [Concomitant]
     Active Substance: WARFARIN SODIUM
     Indication: ANTICOAGULANT THERAPY
     Dosage: 3 MG 6 DAYS A WEEK AND 4.5 MG ONE DAY A WEEK , WEEKLY
  9. DENOSUMAB [Concomitant]
     Active Substance: DENOSUMAB
     Dosage: 120 MG, CYCLIC EVERY 8 WEEKS
  10. GAVISCON /01405501/ [Concomitant]
     Active Substance: SODIUM ALGINATE\SODIUM BICARBONATE
     Indication: GASTROOESOPHAGEAL REFLUX DISEASE
     Dosage: UNK, AS NEEDED
  11. LETROZOLE. [Concomitant]
     Active Substance: LETROZOLE
     Indication: BONE CANCER
     Dosage: 2.5 MG, 1X/DAY
  12. OMEGA-3 ACIDS [Concomitant]
     Active Substance: OMEGA-3 FATTY ACIDS
     Indication: SUPPLEMENTATION THERAPY
     Dosage: TWO OF THEM DAILY
  13. CALTRATE 600+D [Concomitant]
     Dosage: UNK, 2X/DAY

REACTIONS (4)
  - Product use issue [Unknown]
  - Stomatitis [Not Recovered/Not Resolved]
  - Rash macular [Unknown]
  - Dysphagia [Unknown]

NARRATIVE: CASE EVENT DATE: 20150430
